FAERS Safety Report 20385445 (Version 2)
Quarter: 2022Q1

REPORT INFORMATION
  Report Type: Spontaneous
  Country: JP (occurrence: JP)
  Receive Date: 20220127
  Receipt Date: 20220210
  Transmission Date: 20220424
  Serious: Yes (Hospitalization)
  Sender: FDA-Public Use
  Company Number: JP-TEVA-2022-JP-2001076

PATIENT
  Age: 37 Year
  Sex: Male
  Weight: 63.9 kg

DRUGS (4)
  1. PREDNISOLONE [Suspect]
     Active Substance: PREDNISOLONE
     Indication: Pulmonary arterial hypertension
     Dosage: 30 MILLIGRAM DAILY; LATER, HE RECEIVED HIGH DOSE OF PREDNISOLONE
     Route: 065
  2. PREDNISOLONE [Suspect]
     Active Substance: PREDNISOLONE
     Indication: Microscopic polyangiitis
  3. BERAPROST [Suspect]
     Active Substance: BERAPROST
     Indication: Pulmonary arterial pressure
     Dosage: 360 MICROGRAM DAILY; MAXIMUM 360UG/DAY
     Route: 048
  4. BOSENTAN [Suspect]
     Active Substance: BOSENTAN
     Indication: Pulmonary arterial hypertension
     Dosage: 125 MILLIGRAM DAILY;
     Route: 065

REACTIONS (2)
  - Substance-induced psychotic disorder [Recovered/Resolved]
  - Drug ineffective [Unknown]
